FAERS Safety Report 13053101 (Version 1)
Quarter: 2016Q4

REPORT INFORMATION
  Report Type: Report from Study
  Country: US (occurrence: US)
  Receive Date: 20161222
  Receipt Date: 20161222
  Transmission Date: 20170207
  Serious: Yes (Other)
  Sender: FDA-Public Use
  Company Number: PHEH2016US032979

PATIENT
  Sex: Female

DRUGS (1)
  1. LETROZOLE. [Suspect]
     Active Substance: LETROZOLE
     Indication: BREAST CANCER
     Route: 065

REACTIONS (5)
  - Metastases to lung [Unknown]
  - Metastases to spine [Unknown]
  - Drug ineffective [Unknown]
  - Feeling abnormal [Unknown]
  - Metastases to liver [Unknown]
